FAERS Safety Report 9680993 (Version 1)
Quarter: 2013Q4

REPORT INFORMATION
  Report Type: Spontaneous
  Country: US (occurrence: None)
  Receive Date: 20131108
  Receipt Date: 20131108
  Transmission Date: 20140711
  Serious: Yes (Hospitalization)
  Sender: FDA-Public Use
  Company Number: None

PATIENT
  Age: 41 Year
  Sex: Male
  Weight: 103 kg

DRUGS (2)
  1. IBUPROFEN [Suspect]
     Indication: JOINT SWELLING
     Route: 048
     Dates: start: 20131030, end: 20131102
  2. WARFARIN [Suspect]
     Indication: DEEP VEIN THROMBOSIS
     Route: 048

REACTIONS (2)
  - Rash [None]
  - Gastrointestinal haemorrhage [None]
